FAERS Safety Report 24158223 (Version 1)
Quarter: 2024Q3

REPORT INFORMATION
  Report Type: Spontaneous
  Country: US (occurrence: None)
  Receive Date: 20240731
  Receipt Date: 20240731
  Transmission Date: 20241017
  Serious: Yes (Other)
  Sender: Public
  Company Number: None

PATIENT
  Age: 44 Year
  Sex: Male

DRUGS (2)
  1. BRIXADI [Suspect]
     Active Substance: BUPRENORPHINE
     Indication: Drug abuse
     Dosage: 96 MG Q 4 WEEKS SUBCUTANEOUS ?
     Route: 058
     Dates: start: 20240724, end: 20240731
  2. Mirapex ER [Concomitant]

REACTIONS (4)
  - Withdrawal syndrome [None]
  - Restless legs syndrome [None]
  - Decreased appetite [None]
  - Lethargy [None]

NARRATIVE: CASE EVENT DATE: 20240731
